FAERS Safety Report 4351170-5 (Version None)
Quarter: 2004Q2

REPORT INFORMATION
  Report Type: 
  Country: None (occurrence: None)
  Receive Date: 20040428
  Receipt Date: 20031029
  Transmission Date: 20050107
  Serious: Yes (Hospitalization, Other)
  Sender: FDA-Public Use
  Company Number: US-JNJFOC-20031100263

PATIENT
  Sex: Male

DRUGS (1)
  1. ULTRAM [Suspect]
     Indication: HEADACHE
     Route: 048

REACTIONS (1)
  - CONVULSION [None]
